FAERS Safety Report 6814537-9 (Version None)
Quarter: 2010Q2

REPORT INFORMATION
  Report Type: 
  Country: None (occurrence: None)
  Receive Date: 20100629
  Receipt Date: 20100622
  Transmission Date: 20101027
  Serious: Yes (Other)
  Sender: FDA-Public Use
  Company Number: 2010SP029520

PATIENT
  Age: 36 Year
  Sex: Female

DRUGS (2)
  1. SAPHRIS [Suspect]
     Indication: SCHIZOPHRENIA
     Dosage: 5 MG;BID;SL
     Route: 060
     Dates: start: 20100430, end: 20100502
  2. ZOLOFT (CON.) [Concomitant]

REACTIONS (3)
  - AGGRESSION [None]
  - ANGER [None]
  - SELF INJURIOUS BEHAVIOUR [None]
